FAERS Safety Report 18571516 (Version 20)
Quarter: 2025Q3

REPORT INFORMATION
  Report Type: Spontaneous
  Country: US (occurrence: US)
  Receive Date: 20201202
  Receipt Date: 20250714
  Transmission Date: 20251020
  Serious: Yes (Hospitalization, Other)
  Sender: PFIZER
  Company Number: US-PFIZER INC-2020473473

PATIENT
  Age: 65 Year
  Sex: Female
  Weight: 117.93 kg

DRUGS (10)
  1. XELJANZ XR [Suspect]
     Active Substance: TOFACITINIB CITRATE
     Indication: Osteoarthritis
     Dosage: 11 MG, 1X/DAY
     Route: 048
     Dates: start: 2020
  2. XELJANZ XR [Suspect]
     Active Substance: TOFACITINIB CITRATE
     Indication: Rheumatoid arthritis
     Dosage: 11 MG ONE TIME (11MG PO (PER ORAL) QD (EVERY DAY)  )
     Route: 048
  3. XELJANZ XR [Suspect]
     Active Substance: TOFACITINIB CITRATE
     Indication: Arthritis
  4. ALLOPURINOL [Concomitant]
     Active Substance: ALLOPURINOL
  5. VALSARTAN [Concomitant]
     Active Substance: VALSARTAN
  6. HYDROXYZINE [Concomitant]
     Active Substance: HYDROXYZINE HYDROCHLORIDE
     Indication: Blood pressure abnormal
  7. METFORMIN [Concomitant]
     Active Substance: METFORMIN HYDROCHLORIDE
     Indication: Glycosylated haemoglobin abnormal
  8. HYDRALAZINE [Concomitant]
     Active Substance: HYDRALAZINE HYDROCHLORIDE
     Indication: Hypertension
  9. PREDNISONE [Concomitant]
     Active Substance: PREDNISONE
  10. BUMEX [Concomitant]
     Active Substance: BUMETANIDE

REACTIONS (4)
  - COVID-19 [Unknown]
  - Asthenia [Recovering/Resolving]
  - Cardiac pacemaker insertion [Unknown]
  - Illness [Unknown]

NARRATIVE: CASE EVENT DATE: 20240101
